FAERS Safety Report 8008874-2 (Version None)
Quarter: 2011Q4

REPORT INFORMATION
  Report Type: 
  Country: None (occurrence: None)
  Receive Date: 20111227
  Receipt Date: 20111222
  Transmission Date: 20120403
  Serious: No
  Sender: FDA-Public Use
  Company Number: US-B.I. PHARMACEUTICALS,INC./RIDGEFIELD-2011-BP-28701BP

PATIENT
  Sex: Male

DRUGS (5)
  1. PRANDIN [Concomitant]
     Indication: TYPE 2 DIABETES MELLITUS
     Dosage: 2 MG
     Route: 048
  2. METFORMIN HCL [Concomitant]
     Dosage: 1000 MG
     Route: 048
  3. TRADJENTA [Suspect]
     Indication: TYPE 2 DIABETES MELLITUS
     Dosage: 5 MG
     Route: 048
     Dates: start: 20111201
  4. DIOVAN [Concomitant]
     Indication: HYPERTENSION
     Dosage: 80 MG
     Route: 048
  5. METFORMIN HCL [Concomitant]
     Indication: TYPE 2 DIABETES MELLITUS
     Dosage: 500 MG
     Route: 048

REACTIONS (1)
  - DRUG EFFECT DECREASED [None]
